FAERS Safety Report 9334456 (Version 1)
Quarter: 2013Q2

REPORT INFORMATION
  Report Type: Spontaneous
  Country: US (occurrence: US)
  Receive Date: 20130606
  Receipt Date: 20130606
  Transmission Date: 20140414
  Serious: No
  Sender: FDA-Public Use
  Company Number: US-AMGEN-USASP2013027074

PATIENT
  Age: 56 Year
  Sex: Female

DRUGS (9)
  1. PROLIA [Suspect]
     Indication: OSTEOPOROSIS
     Dosage: UNK
     Dates: start: 201206
  2. OXYCONTIN [Concomitant]
     Indication: PAIN
     Dosage: 10 MG, TID
  3. OXYCONTIN [Concomitant]
  4. OXYCODONE [Concomitant]
     Indication: PAIN
     Dosage: 10 MG, UNK
  5. OXYCODONE [Concomitant]
  6. SYNTHROID [Concomitant]
     Indication: HYPOTHYROIDISM
  7. VITAMIN D                          /00107901/ [Concomitant]
  8. ANTIHYPERTENSIVES [Concomitant]
     Indication: HYPERTENSION
  9. VITAMIN D [Concomitant]

REACTIONS (4)
  - Pain [Unknown]
  - Spinal pain [Unknown]
  - Musculoskeletal chest pain [Unknown]
  - Back pain [Unknown]
